FAERS Safety Report 7592071-9 (Version None)
Quarter: 2011Q3

REPORT INFORMATION
  Report Type: 
  Country: None (occurrence: None)
  Receive Date: 20110705
  Receipt Date: 20110705
  Transmission Date: 20111222
  Serious: Yes (Hospitalization)
  Sender: FDA-Public Use
  Company Number: None

PATIENT
  Sex: Female
  Weight: 47.7 kg

DRUGS (1)
  1. LOSARTAN POTASSIUM AND HYDROCHLOROTHIAZIDE [Suspect]
     Indication: HYPERTENSION
     Dosage: LOSARTAN-HCTZ 50-12.5MG DAILY ORAL
     Route: 048
     Dates: start: 20110620, end: 20110628

REACTIONS (7)
  - BLOOD PRESSURE INADEQUATELY CONTROLLED [None]
  - FLUSHING [None]
  - FEELING HOT [None]
  - GAIT DISTURBANCE [None]
  - DIZZINESS [None]
  - DIPLOPIA [None]
  - HEADACHE [None]
